FAERS Safety Report 5195589-1 (Version None)
Quarter: 2006Q4

REPORT INFORMATION
  Report Type: 
  Country: None (occurrence: None)
  Receive Date: 20061226
  Receipt Date: 20061226
  Transmission Date: 20070319
  Serious: No
  Sender: FDA-Public Use
  Company Number: None

PATIENT
  Sex: Male
  Weight: 58.9676 kg

DRUGS (1)
  1. ARICEPT [Suspect]
     Indication: AMNESIA
     Dosage: 10 MG ONE TABLET DAILY PO
     Route: 048
     Dates: start: 20061215, end: 20061215

REACTIONS (7)
  - ABDOMINAL PAIN UPPER [None]
  - ASTHMA [None]
  - DIARRHOEA [None]
  - DIZZINESS [None]
  - DYSPNOEA [None]
  - MALAISE [None]
  - VISION BLURRED [None]
